FAERS Safety Report 24114677 (Version 1)
Quarter: 2024Q3

REPORT INFORMATION
  Report Type: Report from Study
  Country: US (occurrence: US)
  Receive Date: 20240721
  Receipt Date: 20240721
  Transmission Date: 20241016
  Serious: Yes (Hospitalization)
  Sender: MYLAN
  Company Number: US-MYLANLABS-2024M1066826

PATIENT
  Age: 70 Year
  Sex: Female
  Weight: 62.9 kg

DRUGS (11)
  1. ALPRAZOLAM [Suspect]
     Active Substance: ALPRAZOLAM
     Indication: Anxiety
     Dosage: UNK
     Route: 065
     Dates: start: 20240226
  2. ENCORAFENIB [Suspect]
     Active Substance: ENCORAFENIB
     Indication: Gastrointestinal carcinoma
     Dosage: 300 MILLIGRAM, QD
     Route: 048
     Dates: start: 20240327, end: 20240626
  3. PANITUMUMAB [Concomitant]
     Active Substance: PANITUMUMAB
     Indication: Gastrointestinal carcinoma
     Dosage: 500 MILLIGRAM
     Route: 058
  4. ACETAMINOPHEN [Concomitant]
     Active Substance: ACETAMINOPHEN
     Indication: Pain
     Dosage: UNK
     Route: 065
     Dates: start: 20221029
  5. ASCORBIC ACID [Concomitant]
     Active Substance: ASCORBIC ACID
     Indication: Supplementation therapy
     Dosage: UNK
     Route: 065
  6. ATENOLOL [Concomitant]
     Active Substance: ATENOLOL
     Indication: Essential hypertension
     Dosage: UNK
     Route: 065
     Dates: start: 20200505
  7. ATORVASTATIN [Concomitant]
     Active Substance: ATORVASTATIN
     Indication: Hyperlipidaemia
     Dosage: UNK
     Route: 065
     Dates: start: 20200505
  8. CETIRIZINE HYDROCHLORIDE [Concomitant]
     Active Substance: CETIRIZINE HYDROCHLORIDE
     Indication: Rhinitis
     Dosage: UNK
     Route: 065
     Dates: start: 20200506
  9. DIPHENHYDRAMINE [Concomitant]
     Active Substance: DIPHENHYDRAMINE
     Indication: Pruritus
     Dosage: UNK
     Route: 065
     Dates: start: 20221024
  10. IPRATROPIUM [Concomitant]
     Active Substance: IPRATROPIUM
     Indication: Bronchitis
     Dosage: UNK
     Route: 065
     Dates: start: 20231219
  11. OMEPRAZOLE [Concomitant]
     Active Substance: OMEPRAZOLE
     Indication: Gastrooesophageal reflux disease
     Dosage: UNK
     Route: 065
     Dates: start: 20221028

REACTIONS (1)
  - Drug ineffective [Unknown]
